FAERS Safety Report 7396763-6 (Version None)
Quarter: 2011Q2

REPORT INFORMATION
  Report Type: 
  Country: None (occurrence: None)
  Receive Date: 20110406
  Receipt Date: 20110331
  Transmission Date: 20111010
  Serious: Yes (Other)
  Sender: FDA-Public Use
  Company Number: US-ASTRAZENECA-2007UW12277

PATIENT
  Age: 6471 Day
  Sex: Male
  Weight: 105.5 kg

DRUGS (39)
  1. RISPERDAL [Concomitant]
     Dosage: 2 MG-4 MG
     Route: 048
     Dates: start: 20030801, end: 20040701
  2. LITHIUM CARBONATE [Concomitant]
     Indication: BIPOLAR DISORDER
     Route: 048
     Dates: start: 19960101
  3. GEODON [Concomitant]
     Indication: AGGRESSION
     Route: 048
     Dates: start: 20060501
  4. SYNTHROID [Concomitant]
     Indication: HYPOTHYROIDISM
     Dosage: 100-112.5 MCG EVERY MORNING
     Route: 048
     Dates: start: 20060425
  5. LITHIUM CARBONATE [Concomitant]
     Indication: MOOD SWINGS
     Route: 048
     Dates: start: 19960101
  6. GEODON [Concomitant]
     Indication: BIPOLAR DISORDER
     Route: 048
     Dates: start: 20060501
  7. SEROQUEL [Suspect]
     Route: 048
     Dates: end: 20070502
  8. DEPAKOTE ER [Concomitant]
     Indication: MOOD SWINGS
     Dates: start: 19970101
  9. DEPAKOTE ER [Concomitant]
     Indication: BIPOLAR DISORDER
     Dates: start: 19970101
  10. DEPAKOTE ER [Concomitant]
     Dosage: 250-2500 MG
     Route: 048
     Dates: start: 20050209
  11. GEODON [Concomitant]
     Dosage: 20-80 MG
     Route: 048
     Dates: start: 20060511
  12. GEODON [Concomitant]
     Dosage: 20-80 MG
     Route: 048
     Dates: start: 20060511
  13. KLONOPIN [Concomitant]
     Dates: end: 20070502
  14. LITHIUM CARBONATE [Concomitant]
     Route: 048
     Dates: start: 20050209
  15. CLONIDINE HCL [Concomitant]
     Indication: PSYCHOMOTOR HYPERACTIVITY
     Dates: start: 20050209
  16. KLONOPIN [Concomitant]
     Indication: AGITATION
     Dates: start: 20040101, end: 20060101
  17. NAVANE [Concomitant]
     Dates: start: 19970101, end: 20050101
  18. SEROQUEL [Suspect]
     Dosage: 50 MG - 400 MG
     Route: 048
     Dates: start: 20041014, end: 20060101
  19. SEROQUEL [Suspect]
     Route: 048
     Dates: start: 20060101
  20. SEROQUEL [Suspect]
     Route: 048
     Dates: start: 20060101
  21. ZYPREXA [Concomitant]
     Indication: BIPOLAR DISORDER
     Route: 048
     Dates: start: 20050725, end: 20050801
  22. DEPAKOTE ER [Concomitant]
     Dosage: 250-2500 MG
     Route: 048
     Dates: start: 20050209
  23. KLONOPIN [Concomitant]
     Dosage: 0.25-0.5 MG B.I.D
     Dates: start: 20060511
  24. KLONOPIN [Concomitant]
     Dates: end: 20070502
  25. RITALIN [Concomitant]
     Indication: ATTENTION DEFICIT/HYPERACTIVITY DISORDER
  26. RITALIN [Concomitant]
     Indication: INTERMITTENT EXPLOSIVE DISORDER
  27. SEROQUEL [Suspect]
     Route: 048
     Dates: end: 20070401
  28. CLONIDINE HCL [Concomitant]
     Indication: ATTENTION DEFICIT/HYPERACTIVITY DISORDER
     Dates: start: 20050209
  29. SEROQUEL [Suspect]
     Indication: PSYCHOTIC DISORDER
     Dosage: 25-400 MG
     Route: 048
     Dates: start: 20040929
  30. SEROQUEL [Suspect]
     Route: 048
     Dates: end: 20070401
  31. RISPERDAL [Concomitant]
     Indication: BIPOLAR DISORDER
     Dosage: 5 MG - 400 MG
     Route: 048
     Dates: start: 19970101, end: 20041014
  32. LITHIUM CARBONATE [Concomitant]
     Route: 048
     Dates: start: 20050209
  33. HALDOL [Concomitant]
     Dosage: 40-180 MG
     Dates: start: 20060308
  34. SEROQUEL [Suspect]
     Indication: BIPOLAR DISORDER
     Dosage: 25-400 MG
     Route: 048
     Dates: start: 20040929
  35. SEROQUEL [Suspect]
     Dosage: 50 MG - 400 MG
     Route: 048
     Dates: start: 20041014, end: 20060101
  36. SEROQUEL [Suspect]
     Route: 048
     Dates: end: 20070502
  37. KLONOPIN [Concomitant]
     Indication: DELAYED SLEEP PHASE
     Dates: start: 20040101, end: 20060101
  38. KLONOPIN [Concomitant]
     Dosage: 0.25-0.5 MG B.I.D
     Dates: start: 20060511
  39. REMERON [Concomitant]
     Indication: DELAYED SLEEP PHASE
     Dates: end: 20070502

REACTIONS (4)
  - ABNORMAL BEHAVIOUR [None]
  - TYPE 2 DIABETES MELLITUS [None]
  - TYPE 1 DIABETES MELLITUS [None]
  - BLOOD TRIGLYCERIDES INCREASED [None]
